FAERS Safety Report 4890470-7 (Version None)
Quarter: 2005Q4

REPORT INFORMATION
  Report Type: 
  Country: None (occurrence: None)
  Receive Date: 20051216
  Receipt Date: 20050902
  Transmission Date: 20060501
  Serious: No
  Sender: FDA-Public Use
  Company Number: BDI-007469

PATIENT
  Age: 57 Year
  Sex: Female
  Weight: 43.9 kg

DRUGS (3)
  1. MULTIHANCE [Suspect]
     Indication: BREAST CANCER IN SITU
     Dosage: 15  ML ONCE IV
     Route: 042
     Dates: start: 20050718, end: 20050718
  2. MULTIHANCE [Suspect]
     Indication: NUCLEAR MAGNETIC RESONANCE IMAGING
     Dosage: 15  ML ONCE IV
     Route: 042
     Dates: start: 20050718, end: 20050718
  3. PREMPRO [Concomitant]

REACTIONS (3)
  - INJECTION SITE ERYTHEMA [None]
  - INJECTION SITE SWELLING [None]
  - PHLEBITIS [None]
